FAERS Safety Report 6507545-9 (Version None)
Quarter: 2009Q4

REPORT INFORMATION
  Report Type: 
  Country: None (occurrence: None)
  Receive Date: 20091216
  Receipt Date: 20091204
  Transmission Date: 20100525
  Serious: Yes (Other)
  Sender: FDA-Public Use
  Company Number: DSA_42144_2009

PATIENT
  Sex: Female

DRUGS (2)
  1. WELLBUTRIN XL [Suspect]
     Indication: ANXIETY
     Dosage: 150 MG
     Dates: start: 20050101, end: 20091101
  2. WELLBUTRIN XL [Suspect]
     Indication: DEPRESSION
     Dosage: 150 MG
     Dates: start: 20050101, end: 20091101

REACTIONS (1)
  - ELECTROCARDIOGRAM QT PROLONGED [None]
